FAERS Safety Report 21787794 (Version 1)
Quarter: 2022Q4

REPORT INFORMATION
  Report Type: Spontaneous
  Country: US (occurrence: US)
  Receive Date: 20221228
  Receipt Date: 20221228
  Transmission Date: 20230112
  Serious: No
  Sender: FDA-Public Use
  Company Number: US-SA-SAC20221226000210

PATIENT
  Age: 32 Year
  Sex: Female

DRUGS (1)
  1. DUPIXENT [Suspect]
     Active Substance: DUPILUMAB
     Dosage: 300MG, FREQUENCY:OTHER
     Route: 058

REACTIONS (9)
  - Burning sensation [Unknown]
  - Oral herpes [Unknown]
  - Stress [Unknown]
  - Rash [Unknown]
  - Dry eye [Unknown]
  - Eye pruritus [Unknown]
  - Hypersensitivity [Unknown]
  - Condition aggravated [Unknown]
  - Drug ineffective [Unknown]
